FAERS Safety Report 4478862-1 (Version None)
Quarter: 2004Q4

REPORT INFORMATION
  Report Type: 
  Country: None (occurrence: None)
  Receive Date: 20041014
  Receipt Date: 20041008
  Transmission Date: 20050328
  Serious: Yes (Death)
  Sender: FDA-Public Use
  Company Number: GBWYE011101SEP04

PATIENT
  Age: 91 Year

DRUGS (7)
  1. EFFEXOR XR [Suspect]
     Indication: DEPRESSION
     Dosage: 75 MG 1X PER 1 DAY ORAL
     Route: 048
     Dates: start: 20040830, end: 20040901
  2. TILDIEM - SLOW RELEASE (DILTIAZEM HYDROCHLORIDE) [Concomitant]
  3. TOLBUTAMIDE [Concomitant]
  4. DIGOXIN [Concomitant]
  5. SENNA (SENNA) [Concomitant]
  6. FRAGMIN [Concomitant]
  7. NUTRITIONAL SUPPLEMENT (NUTRITIONAL SUPPLEMENT) [Concomitant]

REACTIONS (1)
  - ANGIONEUROTIC OEDEMA [None]
